FAERS Safety Report 15310570 (Version 1)
Quarter: 2018Q3

REPORT INFORMATION
  Report Type: Spontaneous
  Country: AU (occurrence: AU)
  Receive Date: 20180823
  Receipt Date: 20180823
  Transmission Date: 20181010
  Serious: Yes (Other)
  Sender: FDA-Public Use
  Company Number: AU-GLAXOSMITHKLINE-AU2018GSK121897

PATIENT
  Age: 67 Year
  Sex: Female
  Weight: 75 kg

DRUGS (1)
  1. FLIXOTIDE ACCUHALER [Suspect]
     Active Substance: FLUTICASONE PROPIONATE
     Indication: UPPER RESPIRATORY TRACT INFECTION
     Dosage: 250 UNK, 1D
     Route: 055
     Dates: start: 20180625, end: 20180709

REACTIONS (5)
  - Sensation of foreign body [Unknown]
  - Product quality issue [Unknown]
  - Foreign body in respiratory tract [Unknown]
  - Asthma [Unknown]
  - Circumstance or information capable of leading to medication error [Unknown]

NARRATIVE: CASE EVENT DATE: 20180708
